FAERS Safety Report 6339039-8 (Version None)
Quarter: 2009Q3

REPORT INFORMATION
  Report Type: 
  Country: None (occurrence: None)
  Receive Date: 20090903
  Receipt Date: 20090825
  Transmission Date: 20100115
  Serious: Yes (Hospitalization)
  Sender: FDA-Public Use
  Company Number: JP-BAYER-200912855BYL

PATIENT
  Age: 80 Year
  Sex: Male
  Weight: 50 kg

DRUGS (6)
  1. IOPAMIRON INJ. 370 [Suspect]
     Indication: ANGIOGRAM
     Route: 012
     Dates: start: 20090819, end: 20090819
  2. IOPAMIRON INJ. 370 [Suspect]
     Dosage: TOTAL DAILY DOSE: 150 ML
     Route: 013
     Dates: start: 20090729, end: 20090729
  3. EOB PRIMOVIST INJ. SYRINGE [Suspect]
     Indication: NUCLEAR MAGNETIC RESONANCE IMAGING
     Dosage: TOTAL DAILY DOSE: 5 ML
     Route: 042
     Dates: start: 20090728, end: 20090728
  4. PROHANCE [Suspect]
     Indication: NUCLEAR MAGNETIC RESONANCE IMAGING
     Dosage: TOTAL DAILY DOSE: 10 ML
     Route: 042
     Dates: start: 20090731, end: 20090731
  5. SOLITA-T NO.3-G [Concomitant]
     Indication: FLUID REPLACEMENT
     Route: 042
     Dates: start: 20090729
  6. SEISHOKU [Concomitant]
     Indication: PREMEDICATION
     Route: 042
     Dates: start: 20090819

REACTIONS (2)
  - BLOOD CREATININE INCREASED [None]
  - RENAL IMPAIRMENT [None]
